FAERS Safety Report 4378629-9 (Version None)
Quarter: 2004Q2

REPORT INFORMATION
  Report Type: 
  Country: None (occurrence: None)
  Receive Date: 20040609
  Receipt Date: 20040526
  Transmission Date: 20050107
  Serious: Yes (Death, Life-Threatening, Hospitalization)
  Sender: FDA-Public Use
  Company Number: HQWYE127227MAY04

PATIENT
  Age: 66 Year
  Sex: Female

DRUGS (4)
  1. VANCOLED (VANCOMYCIN HYDROCHLORIDE, ORAL SUSPENSION) [Suspect]
     Indication: CLOSTRIDIUM COLITIS
     Dosage: 125 MG 4 X PER 1 DAY
  2. IMMUNOGLOBULINS (IMMUNOGLOBULINS) [Suspect]
     Indication: CLOSTRIDIUM COLITIS
     Dosage: 400 MG/KG X 3 INTRAVENOUS; 300 MG/KG X 3 INTRAVENOUS
     Route: 042
  3. METRONIDAZOLE [Suspect]
     Indication: CLOSTRIDIUM COLITIS
     Dosage: 400 MG 3X PER 1 DAY ORAL; 400 MG 3X PER 1 DAY ORAL
     Route: 048
  4. METRONIDAZOLE [Suspect]
     Indication: CLOSTRIDIUM COLITIS
     Dosage: 400 MG 3X PER 1 DAY ORAL; 400 MG 3X PER 1 DAY ORAL
     Route: 048

REACTIONS (4)
  - BLOOD ALBUMIN DECREASED [None]
  - BLOOD POTASSIUM DECREASED [None]
  - DRUG INEFFECTIVE [None]
  - WHITE BLOOD CELL COUNT INCREASED [None]
